FAERS Safety Report 23204631 (Version 2)
Quarter: 2023Q4

REPORT INFORMATION
  Report Type: Report from Study
  Country: MX (occurrence: MX)
  Receive Date: 20231120
  Receipt Date: 20231205
  Transmission Date: 20240110
  Serious: No
  Sender: FDA-Public Use
  Company Number: MX-002147023-NVSC2023MX244144

PATIENT
  Age: 67 Year
  Sex: Female
  Weight: 148 kg

DRUGS (1)
  1. FEMARA [Suspect]
     Active Substance: LETROZOLE
     Indication: Breast cancer
     Dosage: 1 DOSAGE FORM, QD
     Route: 048
     Dates: start: 202105

REACTIONS (4)
  - Fall [Recovered/Resolved]
  - Bone disorder [Unknown]
  - Meniscus injury [Unknown]
  - Osteopenia [Unknown]

NARRATIVE: CASE EVENT DATE: 20230914
